FAERS Safety Report 8577150-1 (Version None)
Quarter: 2012Q3

REPORT INFORMATION
  Report Type: 
  Country: None (occurrence: None)
  Receive Date: 20120807
  Receipt Date: 20120730
  Transmission Date: 20120928
  Serious: Yes (Hospitalization)
  Sender: FDA-Public Use
  Company Number: GB-JNJFOC-20110806123

PATIENT
  Age: 37 Year
  Sex: Male
  Weight: 68 kg

DRUGS (6)
  1. REMICADE [Suspect]
     Route: 042
     Dates: start: 20100809
  2. REMICADE [Suspect]
     Route: 042
     Dates: start: 20100726
  3. REMICADE [Suspect]
     Route: 042
     Dates: start: 20110314
  4. REMICADE [Suspect]
     Route: 042
     Dates: start: 20100906
  5. REMICADE [Suspect]
     Route: 042
     Dates: start: 20110117
  6. REMICADE [Suspect]
     Indication: COLITIS ULCERATIVE
     Route: 042
     Dates: start: 20101122

REACTIONS (1)
  - RESECTION OF RECTUM [None]
